FAERS Safety Report 4832788-X (Version None)
Quarter: 2005Q4

REPORT INFORMATION
  Report Type: 
  Country: None (occurrence: None)
  Receive Date: 20051117
  Receipt Date: 20051117
  Transmission Date: 20060501
  Serious: No
  Sender: FDA-Public Use
  Company Number: None

PATIENT
  Age: 26 Year
  Sex: Male
  Weight: 101.1521 kg

DRUGS (1)
  1. BLEOMYCIN [Suspect]
     Indication: HODGKIN'S DISEASE
     Dosage: 21U  DAY 1 + DAY 15 IV
     Route: 042
     Dates: start: 20050621, end: 20050927

REACTIONS (1)
  - PULMONARY TOXICITY [None]
